FAERS Safety Report 14828099 (Version 2)
Quarter: 2018Q2

REPORT INFORMATION
  Report Type: Report from Study
  Country: US (occurrence: US)
  Receive Date: 20180430
  Receipt Date: 20180612
  Transmission Date: 20180711
  Serious: Yes (Congenital Anomaly, Other)
  Sender: FDA-Public Use
  Company Number: US-JNJFOC-20180429365

PATIENT
  Age: 0 Year
  Sex: Female
  Weight: 2.84 kg

DRUGS (1)
  1. REMICADE [Suspect]
     Active Substance: INFLIXIMAB
     Indication: COLITIS ULCERATIVE
     Route: 064
     Dates: start: 20110105

REACTIONS (3)
  - Foetal exposure during pregnancy [Recovered/Resolved]
  - Ear infection [Unknown]
  - Premature baby [Unknown]

NARRATIVE: CASE EVENT DATE: 20151022
